FAERS Safety Report 18580817 (Version 1)
Quarter: 2020Q4

REPORT INFORMATION
  Report Type: Not Available
  Country: None (occurrence: None)
  Receive Date: 20201204
  Receipt Date: 20201204
  Transmission Date: 20210114
  Serious: No
  Sender: FDA-Public Use
  Company Number: US-AKORN PHARMACEUTICALS-2020AKN00584

PATIENT
  Age: 37 Year
  Sex: Male
  Weight: 80 kg

DRUGS (1)
  1. MYORISAN [Suspect]
     Active Substance: ISOTRETINOIN

REACTIONS (4)
  - Unevaluable event [Unknown]
  - Skin abrasion [Unknown]
  - Product use in unapproved indication [Recovered/Resolved]
  - Haemorrhoids [Unknown]
